FAERS Safety Report 21521338 (Version 2)
Quarter: 2022Q4

REPORT INFORMATION
  Report Type: Spontaneous
  Country: MX (occurrence: BR)
  Receive Date: 20221028
  Receipt Date: 20221110
  Transmission Date: 20230112
  Serious: Yes (Hospitalization, Other)
  Sender: FDA-Public Use
  Company Number: MX-BAXTER-2022BAX022792

PATIENT
  Age: 30 Year
  Sex: Male
  Weight: 74.4 kg

DRUGS (18)
  1. GENUXAL [Suspect]
     Active Substance: CYCLOPHOSPHAMIDE
     Indication: Chemotherapy
     Dosage: 4TH CYCLE, 1000 MG
     Route: 042
     Dates: start: 20210214
  2. GENUXAL [Suspect]
     Active Substance: CYCLOPHOSPHAMIDE
     Dosage: 5TH CYCLE, 1000 MG
     Route: 042
     Dates: start: 20210314
  3. GENUXAL [Suspect]
     Active Substance: CYCLOPHOSPHAMIDE
     Dosage: 6TH CYCLE, 1000 MG
     Route: 042
     Dates: start: 20210411
  4. GENUXAL [Suspect]
     Active Substance: CYCLOPHOSPHAMIDE
     Dosage: 7TH CYCLE, 1000 MG
     Route: 042
     Dates: start: 20210613
  5. GENUXAL [Suspect]
     Active Substance: CYCLOPHOSPHAMIDE
     Dosage: 8TH CYCLE, 1300 MG
     Route: 042
     Dates: start: 20220815
  6. GENUXAL [Suspect]
     Active Substance: CYCLOPHOSPHAMIDE
     Dosage: 9TH CYCLE, 1000 MG IN 250 ML SALINE SOLUTION 0.9% FOR 1 HOUR
     Route: 042
     Dates: start: 20221017
  7. SODIUM CHLORIDE [Suspect]
     Active Substance: SODIUM CHLORIDE
     Indication: Medication dilution
     Dosage: 9TH 250 ML USED TO DILUTE 1000 MG CYCLOPHOSPHAMIDE
     Route: 042
     Dates: start: 20221017
  8. SODIUM CHLORIDE [Suspect]
     Active Substance: SODIUM CHLORIDE
     Indication: Fluid replacement
     Dosage: 1000 ML USED AS HYDRATION 60 MIN PRIOR TO CHEMOTHERAPY
     Route: 042
     Dates: start: 20210214
  9. SODIUM CHLORIDE [Suspect]
     Active Substance: SODIUM CHLORIDE
     Dosage: 1000 ML USED AS HYDRATION 60 MIN PRIOR TO CHEMOTHERAPY
     Route: 042
     Dates: start: 20210314
  10. SODIUM CHLORIDE [Suspect]
     Active Substance: SODIUM CHLORIDE
     Dosage: 1000 ML USED AS HYDRATION 60 MIN PRIOR TO CHEMOTHERAPY
     Route: 042
     Dates: start: 20210411
  11. SODIUM CHLORIDE [Suspect]
     Active Substance: SODIUM CHLORIDE
     Dosage: 1000 ML USED AS HYDRATION 60 MIN PRIOR TO CHEMOTHERAPY
     Route: 042
     Dates: start: 20220613
  12. SODIUM CHLORIDE [Suspect]
     Active Substance: SODIUM CHLORIDE
     Dosage: 1000 ML USED AS HYDRATION 60 MIN PRIOR TO CHEMOTHERAPY
     Route: 042
     Dates: start: 20220815
  13. SODIUM CHLORIDE [Suspect]
     Active Substance: SODIUM CHLORIDE
     Dosage: 1000 ML USED AS HYDRATION 60 MIN PRIOR TO CHEMOTHERAPY
     Route: 042
     Dates: start: 20221017
  14. AMLODIPINE [Concomitant]
     Active Substance: AMLODIPINE BESYLATE
     Indication: Product used for unknown indication
     Dosage: 5 MG, (1 TABLET), BEFORE CHEMOTHERAPY
     Route: 048
     Dates: start: 20221017
  15. LOSARTAN [Concomitant]
     Active Substance: LOSARTAN
     Indication: Product used for unknown indication
     Dosage: 50 MG (1 TABLET), BEFORE CHEMOTHERAPY
     Route: 048
     Dates: start: 20221017
  16. FUROSEMIDE [Concomitant]
     Active Substance: FUROSEMIDE
     Indication: Product used for unknown indication
     Dosage: 20 MG, AFTER CHEMOTHERAPY, PREMEDICATION
     Route: 042
  17. ONDANSETRON [Concomitant]
     Active Substance: ONDANSETRON
     Indication: Product used for unknown indication
     Dosage: 8 MG, BEFORE CHEMOTHERAPY, PREMEDICATION
     Route: 042
  18. ACETAMINOPHEN [Concomitant]
     Active Substance: ACETAMINOPHEN
     Indication: Product used for unknown indication
     Dosage: 1 G, AT MEDICAL DISCRETION, PREMEDICATION
     Route: 065

REACTIONS (7)
  - Cold sweat [Recovered/Resolved]
  - Eyelid oedema [Recovered/Resolved]
  - Hyperaemia [Recovered/Resolved]
  - Hypotension [Recovered/Resolved]
  - Nausea [Recovered/Resolved]
  - Vomiting [Recovered/Resolved]
  - Rash [Recovered/Resolved]

NARRATIVE: CASE EVENT DATE: 20221017
